FAERS Safety Report 18543495 (Version 1)
Quarter: 2020Q4

REPORT INFORMATION
  Report Type: Spontaneous
  Country: FR (occurrence: FR)
  Receive Date: 20201124
  Receipt Date: 20201124
  Transmission Date: 20210114
  Serious: Yes (Death)
  Sender: FDA-Public Use
  Company Number: FR-BAXTER-2020BAX023599

PATIENT
  Age: 90 Year
  Sex: Female
  Weight: 48 kg

DRUGS (1)
  1. EXTRANEAL [Suspect]
     Active Substance: CALCIUM CHLORIDE\ICODEXTRIN\MAGNESIUM CHLORIDE\SODIUM CHLORIDE\SODIUM LACTATE
     Indication: PERITONEAL DIALYSIS
     Route: 033
     Dates: start: 20180426

REACTIONS (4)
  - Lung disorder [Recovering/Resolving]
  - Anaphylactic shock [Recovering/Resolving]
  - Cardiac disorder [Unknown]
  - Bronchospasm [Fatal]

NARRATIVE: CASE EVENT DATE: 20201113
